FAERS Safety Report 15812452 (Version 1)
Quarter: 2019Q1

REPORT INFORMATION
  Report Type: Spontaneous
  Country: US (occurrence: US)
  Receive Date: 20190110
  Receipt Date: 20190110
  Transmission Date: 20190417
  Serious: No
  Sender: FDA-Public Use
  Company Number: None

PATIENT
  Age: 22 Year
  Sex: Female
  Weight: 67.5 kg

DRUGS (3)
  1. SUPRAX [Suspect]
     Active Substance: CEFIXIME
     Indication: GONORRHOEA
     Dosage: ?          QUANTITY:1 CAPSULE(S);OTHER FREQUENCY:TAKE 1 CAPSULE;?
     Route: 048
     Dates: start: 20190110, end: 20190110
  2. CGM( CONTINUOUS GLUCOSE MONITOR) [Concomitant]
  3. ADMELOG INSULIN [Concomitant]

REACTIONS (5)
  - Asthenia [None]
  - Hypersomnia [None]
  - Blood glucose decreased [None]
  - Dizziness [None]
  - Nausea [None]

NARRATIVE: CASE EVENT DATE: 20190110
